FAERS Safety Report 5984347-3 (Version None)
Quarter: 2008Q4

REPORT INFORMATION
  Report Type: 
  Country: None (occurrence: None)
  Receive Date: 20081208
  Receipt Date: 20081201
  Transmission Date: 20090506
  Serious: Yes (Hospitalization)
  Sender: FDA-Public Use
  Company Number: PHHY2008BE29027

PATIENT
  Age: 75 Year
  Sex: Male

DRUGS (2)
  1. EXELON [Suspect]
     Dosage: 6 MG, BID
     Route: 048
  2. EXELON [Suspect]
     Dosage: UNK

REACTIONS (2)
  - DIARRHOEA [None]
  - SYNCOPE [None]
